FAERS Safety Report 11514118 (Version 1)
Quarter: 2015Q3

REPORT INFORMATION
  Report Type: Spontaneous
  Country: US (occurrence: US)
  Receive Date: 20150903
  Receipt Date: 20150903
  Transmission Date: 20151125
  Serious: Yes (Other)
  Sender: FDA-Public Use
  Company Number: US-ELI_LILLY_AND_COMPANY-US201212003161

PATIENT
  Age: 38 Year
  Sex: Female

DRUGS (5)
  1. CYMBALTA [Suspect]
     Active Substance: DULOXETINE HYDROCHLORIDE
     Dosage: 30 MG, PRN
     Dates: end: 20121205
  2. CYMBALTA [Suspect]
     Active Substance: DULOXETINE HYDROCHLORIDE
     Dosage: 60 MG, QD
     Dates: end: 20121205
  3. CYMBALTA [Suspect]
     Active Substance: DULOXETINE HYDROCHLORIDE
     Indication: BIPOLAR DISORDER
     Dosage: 30 MG, QD
  4. LITHIUM. [Concomitant]
     Active Substance: LITHIUM
  5. XANAX [Concomitant]
     Active Substance: ALPRAZOLAM

REACTIONS (5)
  - Anxiety [Unknown]
  - Drug withdrawal syndrome [Unknown]
  - Crying [Unknown]
  - Influenza like illness [Unknown]
  - Suicidal ideation [Unknown]
